FAERS Safety Report 24239446 (Version 1)
Quarter: 2024Q3

REPORT INFORMATION
  Report Type: Spontaneous
  Country: US (occurrence: US)
  Receive Date: 20240822
  Receipt Date: 20240822
  Transmission Date: 20241016
  Serious: No
  Sender: AVADEL CNS PHARMA
  Company Number: US-AVADEL CNS PHARMACEUTICALS, LLC-2024AVA01147

PATIENT
  Age: 22 Year
  Sex: Female

DRUGS (6)
  1. LUMRYZ [Suspect]
     Active Substance: SODIUM OXYBATE
     Indication: Narcolepsy
     Dosage: 6 G, ONCE NIGHTLY
     Route: 048
     Dates: start: 20240607, end: 20240623
  2. LUMRYZ [Suspect]
     Active Substance: SODIUM OXYBATE
     Indication: Headache
  3. TYLENOL [Concomitant]
     Active Substance: ACETAMINOPHEN
  4. PROAIR RESPICLICK [Concomitant]
     Active Substance: ALBUTEROL SULFATE
     Dosage: AER POW BA
  5. DEXTROAMPHETAMINE [Concomitant]
     Active Substance: DEXTROAMPHETAMINE
  6. WAKIX [Concomitant]
     Active Substance: PITOLISANT HYDROCHLORIDE

REACTIONS (7)
  - Brain fog [Not Recovered/Not Resolved]
  - Middle insomnia [Recovering/Resolving]
  - Feeling abnormal [Recovering/Resolving]
  - Emotional disorder [Recovering/Resolving]
  - Panic attack [Recovering/Resolving]
  - Paranoia [Recovering/Resolving]
  - Drug hypersensitivity [Unknown]

NARRATIVE: CASE EVENT DATE: 20240601
